FAERS Safety Report 16013087 (Version 1)
Quarter: 2019Q1

REPORT INFORMATION
  Report Type: Spontaneous
  Country: US (occurrence: US)
  Receive Date: 20190227
  Receipt Date: 20190227
  Transmission Date: 20190418
  Serious: No
  Sender: FDA-Public Use
  Company Number: US-NOVOPROD-640090

PATIENT
  Age: 51 Year
  Sex: Male

DRUGS (9)
  1. SAXENDA [Suspect]
     Active Substance: LIRAGLUTIDE
     Dosage: 1.2 MG, QD FOR A WEEK
     Route: 058
  2. SAXENDA [Suspect]
     Active Substance: LIRAGLUTIDE
     Indication: WEIGHT DECREASED
     Dosage: 0.6 MG, QD
     Route: 058
     Dates: start: 20181203, end: 20181210
  3. SAXENDA [Suspect]
     Active Substance: LIRAGLUTIDE
     Dosage: 2.4 MG, QD
     Route: 058
     Dates: start: 20181224, end: 201812
  4. SAXENDA [Suspect]
     Active Substance: LIRAGLUTIDE
     Dosage: 1.6 MG, QD
     Route: 058
  5. SAXENDA [Suspect]
     Active Substance: LIRAGLUTIDE
     Dosage: 1.8 MG, QD
     Route: 058
     Dates: start: 20181211, end: 20181223
  6. SAXENDA [Suspect]
     Active Substance: LIRAGLUTIDE
     Dosage: 1.8 MG, QD
     Route: 058
  7. SAXENDA [Suspect]
     Active Substance: LIRAGLUTIDE
     Dosage: 1.2 MG, SINGLE
     Route: 058
     Dates: start: 20181210, end: 20181211
  8. SAXENDA [Suspect]
     Active Substance: LIRAGLUTIDE
     Dosage: 1.2 MG, QD
     Route: 058
  9. SAXENDA [Suspect]
     Active Substance: LIRAGLUTIDE
     Dosage: INREASING DOSE BY 0.1 MG QD (1 CLICK)
     Route: 058

REACTIONS (9)
  - Diarrhoea [Recovered/Resolved]
  - Abdominal distension [Unknown]
  - Constipation [Unknown]
  - Off label use [Recovered/Resolved]
  - Bacterial infection [Unknown]
  - Infection parasitic [Unknown]
  - Eructation [Unknown]
  - Gastrointestinal sounds abnormal [Unknown]
  - Off label use [Unknown]

NARRATIVE: CASE EVENT DATE: 201812
